FAERS Safety Report 9233792 (Version 1)
Quarter: 2013Q2

REPORT INFORMATION
  Report Type: Spontaneous
  Country: US (occurrence: US)
  Receive Date: 20130416
  Receipt Date: 20130416
  Transmission Date: 20140414
  Serious: No
  Sender: FDA-Public Use
  Company Number: US-BANPHARM-20120001

PATIENT
  Age: 87 Year
  Sex: Female
  Weight: 47.73 kg

DRUGS (5)
  1. ALEVE LIQUID GELS 220 MG [Suspect]
     Indication: ARTHRITIS
     Route: 048
     Dates: start: 20120720, end: 20120720
  2. ASPIRIN 81 MG [Concomitant]
  3. QUINAPRIL [Concomitant]
     Indication: CARDIAC DISORDER
  4. CYMBALTA [Concomitant]
  5. VITAMINS [Concomitant]

REACTIONS (1)
  - Pruritus generalised [Recovering/Resolving]
